FAERS Safety Report 9162942 (Version 1)
Quarter: 2013Q1

REPORT INFORMATION
  Report Type: Spontaneous
  Country: JP (occurrence: JP)
  Receive Date: 20130314
  Receipt Date: 20130314
  Transmission Date: 20140127
  Serious: Yes (Hospitalization)
  Sender: FDA-Public Use
  Company Number: PHHY2013JP023874

PATIENT
  Age: 67 Year
  Sex: Male

DRUGS (10)
  1. METHYLPREDNISOLONE [Suspect]
     Indication: GLOMERULONEPHRITIS RAPIDLY PROGRESSIVE
     Dosage: 500 MG, DAILY
     Route: 042
  2. METHYLPREDNISOLONE [Suspect]
     Dosage: 500 MG, DAILY
     Route: 042
  3. PREDNISOLONE SANDOZ [Suspect]
     Indication: GLOMERULONEPHRITIS RAPIDLY PROGRESSIVE
     Dosage: 40 MG, DAILY
     Route: 048
  4. PREDNISOLONE SANDOZ [Suspect]
     Dosage: 10 MG, EVERY TWO WEEKS
     Route: 048
  5. PREDNISOLONE SANDOZ [Suspect]
     Dosage: 2.5 MG, PER MONTH
     Route: 048
  6. PREDNISOLONE SANDOZ [Suspect]
     Dosage: 3 MG, DAILY
     Route: 048
  7. PREDNISOLONE SANDOZ [Suspect]
     Dosage: 40 MG, DAILY
     Route: 048
  8. PREDNISOLONE SANDOZ [Suspect]
     Dosage: 30 MG, DAILY
     Route: 048
  9. PREDNISOLONE SANDOZ [Suspect]
     Dosage: 7.5 MG, DAILY
     Route: 048
  10. SULFAMETHOXAZOLE W/TRIMETHOPRIM [Concomitant]
     Indication: PROPHYLAXIS

REACTIONS (9)
  - Haematuria [Recovering/Resolving]
  - Decreased appetite [Recovering/Resolving]
  - Pain [Recovering/Resolving]
  - Nocardiosis [Unknown]
  - Pyrexia [Unknown]
  - Productive cough [Unknown]
  - Meningitis cryptococcal [Recovering/Resolving]
  - Disorientation [Recovering/Resolving]
  - Skin lesion [Recovering/Resolving]
